FAERS Safety Report 18841337 (Version 1)
Quarter: 2021Q1

REPORT INFORMATION
  Report Type: Spontaneous
  Country: RO (occurrence: RO)
  Receive Date: 20210204
  Receipt Date: 20210204
  Transmission Date: 20210419
  Serious: Yes (Other)
  Sender: FDA-Public Use
  Company Number: RO-ABBVIE-21K-135-3759198-00

PATIENT
  Age: 61 Year
  Sex: Female
  Weight: 65 kg

DRUGS (2)
  1. HUMIRA [Suspect]
     Active Substance: ADALIMUMAB
     Indication: CROHN^S DISEASE
  2. HUMIRA [Suspect]
     Active Substance: ADALIMUMAB
     Indication: RHEUMATOID ARTHRITIS
     Route: 058
     Dates: start: 20170329, end: 20200701

REACTIONS (7)
  - Immature granulocyte count increased [Recovering/Resolving]
  - Lymphoproliferative disorder [Recovering/Resolving]
  - Lymphadenopathy [Recovering/Resolving]
  - Lymphocytosis [Recovering/Resolving]
  - Leukocytosis [Recovering/Resolving]
  - COVID-19 [Unknown]
  - Abdominal lymphadenopathy [Recovering/Resolving]

NARRATIVE: CASE EVENT DATE: 20200726
